FAERS Safety Report 18443187 (Version 45)
Quarter: 2023Q2

REPORT INFORMATION
  Report Type: Report from Study
  Country: MX (occurrence: MX)
  Receive Date: 20201029
  Receipt Date: 20230609
  Transmission Date: 20230721
  Serious: Yes (Death, Hospitalization, Other)
  Sender: FDA-Public Use
  Company Number: MX-SHIRE-MX202008603

PATIENT
  Age: 13 Year
  Sex: Male
  Weight: 38 kg

DRUGS (13)
  1. IDURSULFASE [Suspect]
     Active Substance: IDURSULFASE
     Indication: Mucopolysaccharidosis II
     Dosage: 18 GRAM, 1/WEEK
     Route: 042
     Dates: start: 2013
  2. IDURSULFASE [Suspect]
     Active Substance: IDURSULFASE
     Dosage: 3 DOSAGE FORM, 1/WEEK
     Route: 042
     Dates: start: 20200301
  3. IDURSULFASE [Suspect]
     Active Substance: IDURSULFASE
     Dosage: 3 DOSAGE FORM, 1/WEEK
     Route: 042
     Dates: start: 20200405
  4. IDURSULFASE [Suspect]
     Active Substance: IDURSULFASE
     Dosage: 3 DOSAGE FORM, 1/WEEK
     Route: 042
  5. DIPHENHYDRAMINE [Concomitant]
     Active Substance: DIPHENHYDRAMINE
     Indication: Premedication
     Dosage: 0.5 MILLILITER, 1/WEEK
     Route: 048
     Dates: start: 2013
  6. DIPHENHYDRAMINE [Concomitant]
     Active Substance: DIPHENHYDRAMINE
     Dosage: 0.5 MILLILITER, 1/WEEK
     Route: 048
  7. ACETAMINOPHEN [Concomitant]
     Active Substance: ACETAMINOPHEN
     Indication: Premedication
     Dosage: 0.5 MILLILITER, 1/WEEK
     Route: 048
     Dates: start: 2013
  8. ACETAMINOPHEN [Concomitant]
     Active Substance: ACETAMINOPHEN
     Dosage: 0.5 MILLILITER, 1/WEEK
     Route: 048
  9. ALBUTEROL [Concomitant]
     Active Substance: ALBUTEROL
     Indication: Productive cough
     Dosage: UNK
     Route: 065
  10. ALBUTEROL [Concomitant]
     Active Substance: ALBUTEROL
     Indication: Dyspnoea
  11. OXCARBAZEPINE [Concomitant]
     Active Substance: OXCARBAZEPINE
     Indication: Seizure
     Dosage: 500 MILLIGRAM, Q12H
     Route: 048
     Dates: start: 2017
  12. OXCARBAZEPINE [Concomitant]
     Active Substance: OXCARBAZEPINE
     Indication: Mucopolysaccharidosis II
  13. LEVETIRACETAM [Concomitant]
     Active Substance: LEVETIRACETAM
     Indication: Mucopolysaccharidosis II
     Dosage: 600 MILLIGRAM
     Route: 065
     Dates: start: 2017

REACTIONS (26)
  - Pneumonia [Fatal]
  - Haemorrhage [Unknown]
  - Seizure [Recovered/Resolved]
  - Spinal cord lipoma [Not Recovered/Not Resolved]
  - Limb injury [Not Recovered/Not Resolved]
  - Sinusitis [Recovered/Resolved]
  - Abscess limb [Recovered/Resolved]
  - Post procedural complication [Not Recovered/Not Resolved]
  - Restlessness [Not Recovered/Not Resolved]
  - Illness [Recovered/Resolved]
  - Malaise [Recovered/Resolved]
  - Productive cough [Not Recovered/Not Resolved]
  - Procedural pain [Not Recovered/Not Resolved]
  - Mobility decreased [Not Recovered/Not Resolved]
  - Insomnia [Not Recovered/Not Resolved]
  - Respiratory disorder [Recovering/Resolving]
  - COVID-19 [Recovering/Resolving]
  - Hypersensitivity [Recovering/Resolving]
  - Dyspnoea [Not Recovered/Not Resolved]
  - Cough [Not Recovered/Not Resolved]
  - Pyrexia [Recovered/Resolved]
  - Inappropriate schedule of product administration [Unknown]
  - Insurance issue [Recovering/Resolving]
  - Product use in unapproved therapeutic environment [Unknown]
  - Product dose omission issue [Recovering/Resolving]
  - Product availability issue [Unknown]

NARRATIVE: CASE EVENT DATE: 20200223
